FAERS Safety Report 10229483 (Version 2)
Quarter: 2014Q3

REPORT INFORMATION
  Report Type: Spontaneous
  Country: US (occurrence: None)
  Receive Date: 20140609
  Receipt Date: 20140814
  Transmission Date: 20150326
  Serious: Yes (Death)
  Sender: FDA-Public Use
  Company Number: UNT-2014-001514

PATIENT
  Age: 33 Year
  Sex: Female
  Weight: 89.3 kg

DRUGS (2)
  1. REMODULIN [Suspect]
     Active Substance: TREPROSTINIL
     Indication: COR PULMONALE CHRONIC
     Dosage: 0.082 UG/KG/MIN
     Route: 041
     Dates: start: 20111227
  2. WARFARIN (WARFARIN) [Concomitant]
     Active Substance: WARFARIN

REACTIONS (3)
  - Cor pulmonale chronic [None]
  - Death [None]
  - Disease progression [None]

NARRATIVE: CASE EVENT DATE: 20140524
